FAERS Safety Report 14394427 (Version 1)
Quarter: 2018Q1

REPORT INFORMATION
  Report Type: Spontaneous
  Country: US (occurrence: US)
  Receive Date: 20180116
  Receipt Date: 20180116
  Transmission Date: 20180509
  Serious: No
  Sender: FDA-Public Use
  Company Number: US-REGENERON PHARMACEUTICALS, INC.-2017-26986

PATIENT

DRUGS (2)
  1. EYLEA [Suspect]
     Active Substance: AFLIBERCEPT
     Indication: MACULAR DEGENERATION
     Dosage: BOTH EYES (OU)
  2. EYLEA [Suspect]
     Active Substance: AFLIBERCEPT
     Dosage: RECEIVED THE INJECTION IN ONE EYE
     Dates: start: 20171113, end: 20171113

REACTIONS (2)
  - Drug dose omission [Unknown]
  - Product contamination [Unknown]

NARRATIVE: CASE EVENT DATE: 20171113
